FAERS Safety Report 16894271 (Version 1)
Quarter: 2019Q4

REPORT INFORMATION
  Report Type: Spontaneous
  Country: US (occurrence: US)
  Receive Date: 20191007
  Receipt Date: 20191007
  Transmission Date: 20200122
  Serious: Yes (Death)
  Sender: FDA-Public Use
  Company Number: None

PATIENT
  Age: 88 Year
  Sex: Female
  Weight: 65.7 kg

DRUGS (18)
  1. OPDIVO [Suspect]
     Active Substance: NIVOLUMAB
     Indication: NEOPLASM MALIGNANT
     Dosage: ?          OTHER FREQUENCY:EVERY 2 WEEKS;?
     Route: 042
     Dates: start: 20181011, end: 20191007
  2. NITROLIGUAL [Concomitant]
  3. METOPROLOL. [Concomitant]
     Active Substance: METOPROLOL
  4. ISOSORBIDE DINITRATE. [Concomitant]
     Active Substance: ISOSORBIDE DINITRATE
  5. AMBIEN [Concomitant]
     Active Substance: ZOLPIDEM TARTRATE
  6. FUROSEMIDE. [Concomitant]
     Active Substance: FUROSEMIDE
  7. MAALOX ANTACID [Concomitant]
     Active Substance: ALUMINUM HYDROXIDE\DIMETHICONE\MAGNESIUM HYDROXIDE
  8. IBUPROFEN. [Concomitant]
     Active Substance: IBUPROFEN
  9. ASPIRIN. [Concomitant]
     Active Substance: ASPIRIN
  10. AMLODIPINE [Concomitant]
     Active Substance: AMLODIPINE BESYLATE
  11. BREO ELLIPTA [Concomitant]
     Active Substance: FLUTICASONE FUROATE\VILANTEROL TRIFENATATE
  12. FOLIC ACID. [Concomitant]
     Active Substance: FOLIC ACID
  13. LIDODERM [Concomitant]
     Active Substance: LIDOCAINE
  14. ZOFRAN [Concomitant]
     Active Substance: ONDANSETRON HYDROCHLORIDE
  15. ATORVASTATIN [Concomitant]
     Active Substance: ATORVASTATIN
  16. ESCITALOPRAM [Concomitant]
     Active Substance: ESCITALOPRAM OXALATE
  17. DOCUSATE [Concomitant]
     Active Substance: DOCUSATE
  18. COENZYME Q10 [Concomitant]
     Active Substance: UBIDECARENONE

REACTIONS (1)
  - Death [None]

NARRATIVE: CASE EVENT DATE: 20191007
